FAERS Safety Report 5535282-6 (Version None)
Quarter: 2007Q4

REPORT INFORMATION
  Report Type: 
  Country: None (occurrence: None)
  Receive Date: 20071204
  Receipt Date: 20071126
  Transmission Date: 20080405
  Serious: Yes (Hospitalization, Other)
  Sender: FDA-Public Use
  Company Number: 2007SP023795

PATIENT
  Age: 33 Year
  Sex: Female
  Weight: 92.9874 kg

DRUGS (7)
  1. PEG-INTRON [Suspect]
     Indication: HEPATITIS C
     Dosage: SC
     Route: 058
     Dates: start: 20070817, end: 20070901
  2. RIBAVIRIN [Suspect]
     Indication: HEPATITIS C
     Dosage: PO
     Route: 048
     Dates: start: 20070817, end: 20070901
  3. RIBAVIRIN [Suspect]
     Indication: HEPATITIS C
     Dosage: PO
     Route: 048
     Dates: start: 20070101
  4. TRAZODONE HCL [Concomitant]
  5. LEXAPRO [Concomitant]
  6. SEROQUEL [Concomitant]
  7. VALIUM [Concomitant]

REACTIONS (25)
  - ABSCESS [None]
  - ANOREXIA [None]
  - ARTHRALGIA [None]
  - ASTHENIA [None]
  - BACK PAIN [None]
  - BACTERAEMIA [None]
  - BACTERIAL INFECTION [None]
  - CHILLS [None]
  - CHOLELITHIASIS [None]
  - CYSTITIS [None]
  - DEHYDRATION [None]
  - DEPRESSION [None]
  - DIARRHOEA [None]
  - FEELING OF BODY TEMPERATURE CHANGE [None]
  - GASTRIC DISORDER [None]
  - INFLUENZA LIKE ILLNESS [None]
  - INJECTION SITE ERYTHEMA [None]
  - INJECTION SITE SWELLING [None]
  - MYALGIA [None]
  - NAUSEA [None]
  - PYREXIA [None]
  - SYNCOPE [None]
  - THIRST DECREASED [None]
  - VOMITING [None]
  - WEIGHT DECREASED [None]
